FAERS Safety Report 8490486-8 (Version None)
Quarter: 2012Q3

REPORT INFORMATION
  Report Type: 
  Country: None (occurrence: None)
  Receive Date: 20120705
  Receipt Date: 20120628
  Transmission Date: 20120928
  Serious: Yes (Hospitalization)
  Sender: FDA-Public Use
  Company Number: FR-B.I. PHARMACEUTICALS,INC./RIDGEFIELD-2012-BP-14905YA

PATIENT
  Sex: Male

DRUGS (5)
  1. TYSABRI [Suspect]
     Route: 042
     Dates: start: 20080201, end: 20120518
  2. LYRICA [Suspect]
     Dosage: 50 MG
     Dates: start: 20110401
  3. MINIRIN [Suspect]
     Dosage: 0.1 MG
     Dates: start: 20110401
  4. VESICARE [Suspect]
     Dosage: 5 MG
     Route: 048
  5. TAMSULOSIN HCL [Suspect]
     Dosage: 0.4 MG
     Route: 048
     Dates: start: 20090101

REACTIONS (1)
  - PANCREATITIS ACUTE [None]
